FAERS Safety Report 6171458-5 (Version None)
Quarter: 2009Q2

REPORT INFORMATION
  Report Type: 
  Country: None (occurrence: None)
  Receive Date: 20090429
  Receipt Date: 20090421
  Transmission Date: 20091009
  Serious: Yes (Hospitalization, Other)
  Sender: FDA-Public Use
  Company Number: GB-AMGEN-UK322759

PATIENT
  Age: 65 Year
  Sex: Female

DRUGS (10)
  1. ARANESP [Suspect]
     Indication: DIALYSIS
     Route: 058
     Dates: start: 20060601, end: 20081201
  2. TACROLIMUS [Concomitant]
     Route: 065
     Dates: start: 20080919
  3. RANITIDINE [Concomitant]
     Route: 065
     Dates: start: 20080919
  4. ASPIRIN [Concomitant]
     Route: 065
     Dates: start: 20080919
  5. PRAVASTATIN [Concomitant]
     Route: 065
     Dates: start: 20080919
  6. CO-TRIMOXAZOLE [Concomitant]
     Route: 065
     Dates: start: 20080919
  7. PARACETAMOL [Concomitant]
     Route: 065
     Dates: start: 20080919
  8. METOCLOPRAMIDE [Concomitant]
     Route: 065
     Dates: start: 20081008
  9. MYCOPHENOLATE MOFETIL [Concomitant]
     Route: 065
     Dates: start: 20080919
  10. OMEPRAZOLE [Concomitant]
     Route: 065
     Dates: start: 20081010

REACTIONS (2)
  - ANAEMIA [None]
  - APLASIA PURE RED CELL [None]
